FAERS Safety Report 5512207-0 (Version None)
Quarter: 2007Q4

REPORT INFORMATION
  Report Type: 
  Country: None (occurrence: None)
  Receive Date: 20071112
  Receipt Date: 20071103
  Transmission Date: 20080405
  Serious: Yes (Hospitalization, Other)
  Sender: FDA-Public Use
  Company Number: PHBS2007GT18432

PATIENT
  Age: 91 Year
  Sex: Female

DRUGS (5)
  1. DIOVAN HCT [Suspect]
     Indication: HYPERTENSION
     Dosage: UNK, BID
     Route: 048
     Dates: start: 20071026, end: 20071031
  2. COAPROVEL [Suspect]
     Indication: HYPERTENSION
     Route: 048
     Dates: end: 20071025
  3. LANSOPRAZOLE [Concomitant]
     Dosage: 30 MG, QD
     Route: 048
  4. LYRICA [Concomitant]
     Dosage: UNK, Q12H
     Route: 048
  5. VASTAREL [Concomitant]
     Dosage: UNK, QD
     Route: 048

REACTIONS (17)
  - ABDOMINAL PAIN UPPER [None]
  - BACTERIURIA [None]
  - BLOOD CREATINE PHOSPHOKINASE INCREASED [None]
  - ELECTROCARDIOGRAM ABNORMAL [None]
  - HAEMATEMESIS [None]
  - HAEMATURIA [None]
  - HEADACHE [None]
  - HYPERTENSION [None]
  - HYPOCHLORAEMIA [None]
  - HYPOKALAEMIA [None]
  - HYPOMAGNESAEMIA [None]
  - HYPONATRAEMIA [None]
  - INCREASED VENTRICULAR AFTERLOAD [None]
  - LEFT VENTRICULAR HYPERTROPHY [None]
  - NAUSEA [None]
  - PROTEINURIA [None]
  - PYURIA [None]
